FAERS Safety Report 21837583 (Version 1)
Quarter: 2023Q1

REPORT INFORMATION
  Report Type: Spontaneous
  Country: US (occurrence: None)
  Receive Date: 20230106
  Receipt Date: 20230106
  Transmission Date: 20230417
  Serious: Yes (Death)
  Sender: FDA-Public Use
  Company Number: None

PATIENT
  Age: 66 Year
  Sex: Male

DRUGS (11)
  1. PEMAZYRE [Suspect]
     Active Substance: PEMIGATINIB
     Indication: Neoplasm malignant
     Dosage: OTHER QUANTITY : 1 TABLET(S);?FREQUENCY : DAILY;?
     Route: 048
     Dates: start: 20221126, end: 20221128
  2. DILTIAZEM [Concomitant]
     Active Substance: DILTIAZEM
  3. LEVOTHYROXINE [Concomitant]
  4. HYDROCORTISONE [Concomitant]
     Active Substance: HYDROCORTISONE
  5. LOVASTATIN [Concomitant]
     Active Substance: LOVASTATIN
  6. LACTULOSE [Concomitant]
     Active Substance: LACTULOSE
  7. ADVIL [Concomitant]
  8. TRAMADOL [Concomitant]
  9. VITAMIN B12 [Concomitant]
     Active Substance: CYANOCOBALAMIN
  10. VITAMIN D [Concomitant]
     Active Substance: VITAMIN D NOS
  11. SENNA [Concomitant]
     Active Substance: SENNA LEAF\SENNOSIDES\SENNOSIDES A AND B

REACTIONS (2)
  - Product use in unapproved indication [None]
  - Seizure [None]

NARRATIVE: CASE EVENT DATE: 20221128
